FAERS Safety Report 6540192-1 (Version None)
Quarter: 2010Q1

REPORT INFORMATION
  Report Type: 
  Country: None (occurrence: None)
  Receive Date: 20100115
  Receipt Date: 20100106
  Transmission Date: 20100710
  Serious: Yes (Other)
  Sender: FDA-Public Use
  Company Number: GB-WATSON-2010-00183

PATIENT

DRUGS (2)
  1. AMLODIPINE BESYLATE [Suspect]
     Indication: HYPERTENSION
     Dosage: 5 MG, DAILY
  2. IRBESARTAN [Concomitant]
     Indication: HYPERTENSION
     Dosage: 300 MG, DAILY

REACTIONS (1)
  - COLD AGGLUTININS [None]
